FAERS Safety Report 5115511-3 (Version None)
Quarter: 2006Q3

REPORT INFORMATION
  Report Type: 
  Country: None (occurrence: None)
  Receive Date: 20060927
  Receipt Date: 20060921
  Transmission Date: 20061208
  Serious: Yes (Life-Threatening)
  Sender: FDA-Public Use
  Company Number: 2006PK01901

PATIENT
  Age: 99 Year
  Sex: Female

DRUGS (10)
  1. SEROQUEL [Suspect]
     Route: 048
  2. TEMGESIC [Interacting]
     Indication: PAIN
     Route: 060
     Dates: start: 20060717, end: 20060718
  3. EFFEXOR [Interacting]
     Route: 048
  4. FLAMON [Interacting]
     Route: 048
  5. ANXIOLIT [Interacting]
     Route: 048
  6. ACETAMINOPHEN [Concomitant]
     Indication: PAIN
     Route: 042
  7. NEXIUM [Concomitant]
     Route: 048
  8. BELOC [Concomitant]
     Route: 048
  9. COZAAR [Concomitant]
     Route: 048
  10. ASPIRIN [Concomitant]
     Route: 048

REACTIONS (6)
  - BRADYPNOEA [None]
  - COMA [None]
  - DIARRHOEA [None]
  - DRUG INTERACTION [None]
  - MIOSIS [None]
  - VOMITING [None]
